FAERS Safety Report 10006973 (Version 2)
Quarter: 2014Q2

REPORT INFORMATION
  Report Type: Spontaneous
  Country: US (occurrence: None)
  Receive Date: 20140228
  Receipt Date: 20140530
  Transmission Date: 20141212
  Serious: No
  Sender: FDA-Public Use
  Company Number: 225881

PATIENT
  Sex: Female

DRUGS (11)
  1. PICATO [Suspect]
     Indication: ACTINIC KERATOSIS
     Dates: start: 20140115, end: 20140116
  2. PICATO [Suspect]
     Indication: ACTINIC KERATOSIS
     Dates: start: 20140115, end: 20140116
  3. PROPANOLOL [Concomitant]
  4. LEVOTHYROXINE [Concomitant]
  5. SIMVASTATIN [Concomitant]
  6. TOPAMAX (TOPIRAMATE) [Concomitant]
  7. BUSPAR (BUSPIRONE HYDROCHLORIDE0 [Concomitant]
  8. CYMBALTA (DULOXETINE HYDROCHLORIDE) [Concomitant]
  9. PERCOCET (TYLOX) [Concomitant]
  10. FLEXERIL (CYCLOBENZAPRINE HYDROCHLORIDE) [Concomitant]
  11. TIZANIDINE [Suspect]

REACTIONS (5)
  - Application site swelling [None]
  - Application site pain [None]
  - Incorrect drug administration duration [None]
  - Incorrect dose administered [None]
  - Inappropriate schedule of drug administration [None]
